FAERS Safety Report 12621039 (Version 1)
Quarter: 2016Q3

REPORT INFORMATION
  Report Type: Spontaneous
  Country: US (occurrence: None)
  Receive Date: 20160803
  Receipt Date: 20160803
  Transmission Date: 20161109
  Serious: Yes (Other)
  Sender: FDA-Public Use
  Company Number: None

PATIENT
  Age: 45 Year
  Sex: Female
  Weight: 72.58 kg

DRUGS (1)
  1. KENALOG [Suspect]
     Active Substance: TRIAMCINOLONE ACETONIDE
     Indication: BURSITIS
     Dosage: -- INJECTION INTO HIP BURSA VIA ULTRASOUND
     Dates: start: 20160729, end: 20160729

REACTIONS (7)
  - Thirst [None]
  - Stress [None]
  - Blood pressure increased [None]
  - Dizziness [None]
  - Dry mouth [None]
  - Anxiety [None]
  - Headache [None]

NARRATIVE: CASE EVENT DATE: 20160729
